FAERS Safety Report 8270069-5 (Version None)
Quarter: 2012Q2

REPORT INFORMATION
  Report Type: 
  Country: None (occurrence: None)
  Receive Date: 20120410
  Receipt Date: 20120403
  Transmission Date: 20120825
  Serious: Yes (Death)
  Sender: FDA-Public Use
  Company Number: GB-JNJFOC-20120403302

PATIENT

DRUGS (12)
  1. VINBLASTINE SULFATE [Suspect]
     Indication: HODGKIN'S DISEASE
     Route: 042
  2. PROCARBAZINE HYDROCHLORIDE [Suspect]
     Indication: HODGKIN'S DISEASE
     Route: 048
  3. RADIOTHERAPY [Suspect]
     Indication: HODGKIN'S DISEASE
     Route: 065
  4. DOXORUBICIN HCL [Suspect]
     Indication: HODGKIN'S DISEASE
     Route: 042
  5. VINCRISTINE [Suspect]
     Indication: HODGKIN'S DISEASE
     Route: 042
  6. IFOSFAMIDE [Suspect]
     Indication: HODGKIN'S DISEASE
     Route: 065
  7. CHLORAMBUCIL [Suspect]
     Indication: HODGKIN'S DISEASE
     Route: 048
  8. BLEOMYCIN SULFATE [Suspect]
     Indication: HODGKIN'S DISEASE
     Route: 042
  9. PREDNISOLONE [Suspect]
     Indication: HODGKIN'S DISEASE
     Route: 048
  10. CISPLATIN [Suspect]
     Indication: HODGKIN'S DISEASE
     Route: 065
  11. DACARBAZINE [Suspect]
     Indication: HODGKIN'S DISEASE
     Route: 042
  12. ETOPOSIDE [Suspect]
     Indication: HODGKIN'S DISEASE
     Route: 065

REACTIONS (1)
  - GRAFT VERSUS HOST DISEASE [None]
